FAERS Safety Report 10267443 (Version 1)
Quarter: 2014Q2

REPORT INFORMATION
  Report Type: Report from Study
  Country: JP (occurrence: JP)
  Receive Date: 20140630
  Receipt Date: 20140630
  Transmission Date: 20141212
  Serious: Yes (Death)
  Sender: FDA-Public Use
  Company Number: JP-AMGEN-JPNCT2014048672

PATIENT
  Age: 69 Year
  Sex: Male
  Weight: 66 kg

DRUGS (7)
  1. ROMIPLOSTIM - KHK [Suspect]
     Indication: IMMUNE THROMBOCYTOPENIC PURPURA
     Dosage: 2 MUG/KG, UNK
     Route: 058
     Dates: start: 20140512, end: 20140519
  2. SOLU MEDROL [Concomitant]
     Indication: IMMUNE THROMBOCYTOPENIC PURPURA
     Dosage: 40 MG, UNK
     Route: 065
     Dates: start: 20140512, end: 20140521
  3. PREDONINE                          /00016201/ [Concomitant]
     Indication: IMMUNE THROMBOCYTOPENIC PURPURA
     Dosage: 20 MG, UNK
     Route: 065
     Dates: start: 20140522, end: 20140523
  4. MEROPENEM [Concomitant]
     Indication: SPLENIC INFARCTION
     Dosage: UNK
     Route: 041
  5. MINOFIT [Concomitant]
     Indication: HEPATIC FUNCTION ABNORMAL
     Dosage: UNK
     Route: 065
  6. MAXIPIME [Concomitant]
     Indication: SPLENIC INFARCTION
     Dosage: UNK
     Route: 065
  7. FAMOTIDINE [Concomitant]
     Indication: PROPHYLAXIS
     Dosage: UNK
     Route: 065

REACTIONS (1)
  - Cardiac failure acute [Fatal]
